FAERS Safety Report 24260360 (Version 1)
Quarter: 2024Q3

REPORT INFORMATION
  Report Type: Report from Study
  Country: US (occurrence: US)
  Receive Date: 20240828
  Receipt Date: 20240828
  Transmission Date: 20241017
  Serious: Yes (Other)
  Sender: SUNOVION
  Company Number: US-SUMITOMO PHARMA SWITZERLAND GMBH-2024SPA001873

PATIENT

DRUGS (1)
  1. ORGOVYX [Suspect]
     Active Substance: RELUGOLIX
     Indication: Prostate cancer
     Dosage: 120 MG, QD
     Route: 048
     Dates: start: 20240726

REACTIONS (2)
  - Myocardial infarction [Unknown]
  - Incorrect dose administered [Unknown]
